FAERS Safety Report 15255229 (Version 1)
Quarter: 2018Q3

REPORT INFORMATION
  Report Type: Report from Study
  Country: CN (occurrence: CN)
  Receive Date: 20180808
  Receipt Date: 20180808
  Transmission Date: 20181010
  Serious: Yes (Hospitalization)
  Sender: FDA-Public Use
  Company Number: CN-SA-2018SA150672

PATIENT
  Age: 12 Year
  Sex: Male
  Weight: 29.7 kg

DRUGS (21)
  1. BLINDED TERIFLUNOMIDE [Suspect]
     Active Substance: TERIFLUNOMIDE
     Dosage: 7 MG, QD
     Route: 048
     Dates: start: 20161117, end: 20170111
  2. VITAMIN B6 [Concomitant]
     Active Substance: PYRIDOXINE HYDROCHLORIDE
     Dosage: 100 MG, QD
     Route: 042
     Dates: start: 20180524, end: 20180524
  3. BLINDED NO STUDY DRUG GIVEN [Suspect]
     Active Substance: INVESTIGATIONAL PRODUCT
     Indication: MULTIPLE SCLEROSIS RELAPSE
     Dosage: 7 MG, QD
     Route: 048
     Dates: start: 20161011
  4. BLINDED TERIFLUNOMIDE [Suspect]
     Active Substance: TERIFLUNOMIDE
     Indication: MULTIPLE SCLEROSIS RELAPSE
     Dosage: 7 MG, QD
     Route: 048
     Dates: start: 20161011
  5. BLINDED TERIFLUNOMIDE [Suspect]
     Active Substance: TERIFLUNOMIDE
     Dosage: 7 MG, QD
     Route: 048
     Dates: start: 20170626, end: 20170822
  6. PREDNISONE ACETATE [Concomitant]
     Active Substance: PREDNISONE ACETATE
     Dosage: 50 MG, QD
     Route: 048
     Dates: start: 20160626
  7. BLINDED TERIFLUNOMIDE [Suspect]
     Active Substance: TERIFLUNOMIDE
     Dosage: 7 MG, QD
     Route: 048
     Dates: start: 20161117, end: 20170111
  8. BLINDED NO STUDY DRUG GIVEN [Suspect]
     Active Substance: INVESTIGATIONAL PRODUCT
     Dosage: 7 MG, QD
     Route: 048
     Dates: start: 20170626, end: 20170822
  9. CIMETIDINE [Concomitant]
     Active Substance: CIMETIDINE
     Dosage: 0.3 G, QD
     Route: 048
     Dates: start: 20180525, end: 20180529
  10. TRIAMCINOLONE ACETONIDE ACETATE [Concomitant]
     Active Substance: TRIAMCINOLONE ACETONIDE
     Dosage: UNK UNK, UNK
     Route: 061
     Dates: start: 20171220, end: 20180523
  11. BLINDED PLACEBO [Suspect]
     Active Substance: INVESTIGATIONAL PRODUCT
     Dosage: 7 MG, QD
     Route: 048
     Dates: start: 20161117, end: 20170111
  12. CIMETIDINE [Concomitant]
     Active Substance: CIMETIDINE
     Dosage: 0.2 G, QD
     Route: 042
     Dates: start: 20180524, end: 20180524
  13. PREDNISONE ACETATE [Concomitant]
     Active Substance: PREDNISONE ACETATE
     Dosage: 1055 UNK
     Route: 048
     Dates: start: 20170616
  14. BLINDED PLACEBO [Suspect]
     Active Substance: INVESTIGATIONAL PRODUCT
     Dosage: 7 MG, QD
     Route: 048
     Dates: start: 20170626, end: 20170822
  15. BUDESONIDE. [Concomitant]
     Active Substance: BUDESONIDE
     Dosage: 0.2 G, QD
     Route: 048
     Dates: start: 20180207
  16. ECONAZOLE;TRIAMCINOLONE ACETONIDE [Concomitant]
     Dosage: UNK UNK, UNK
     Route: 061
     Dates: start: 20180523, end: 20180601
  17. BLINDED TERIFLUNOMIDE [Suspect]
     Active Substance: TERIFLUNOMIDE
     Dosage: 7 MG, QD
     Route: 048
     Dates: start: 20170626, end: 20170822
  18. DOMPERIDONE [Concomitant]
     Active Substance: DOMPERIDONE
     Dosage: 30 MG, QD
     Route: 048
     Dates: start: 20180525, end: 20180529
  19. BLINDED PLACEBO [Suspect]
     Active Substance: INVESTIGATIONAL PRODUCT
     Indication: MULTIPLE SCLEROSIS RELAPSE
     Dosage: 7 MG, QD
     Route: 048
     Dates: start: 20161011
  20. BLINDED TERIFLUNOMIDE [Suspect]
     Active Substance: TERIFLUNOMIDE
     Indication: MULTIPLE SCLEROSIS RELAPSE
     Dosage: 7 MG, QD
     Route: 048
     Dates: start: 20161011
  21. BLINDED NO STUDY DRUG GIVEN [Suspect]
     Active Substance: INVESTIGATIONAL PRODUCT
     Dosage: 7 MG, QD
     Route: 048
     Dates: start: 20161117, end: 20170111

REACTIONS (1)
  - Tonsillitis [Recovered/Resolved]

NARRATIVE: CASE EVENT DATE: 20180531
